FAERS Safety Report 10622500 (Version 1)
Quarter: 2014Q4

REPORT INFORMATION
  Report Type: Spontaneous
  Country: US (occurrence: None)
  Receive Date: 20141202
  Receipt Date: 20141202
  Transmission Date: 20150529
  Serious: Yes (Disabling, Other)
  Sender: FDA-Public Use
  Company Number: None

PATIENT
  Age: 54 Year
  Sex: Female
  Weight: 95.26 kg

DRUGS (1)
  1. NIX [Suspect]
     Active Substance: PERMETHRIN
     Indication: LICE INFESTATION
     Dosage: CREAM RINSE, ONE TIME, APPLIED TO A SURFACE USUALLY THE SKIN
     Route: 061
     Dates: start: 20141128, end: 20141128

REACTIONS (4)
  - Deafness [None]
  - Ear discomfort [None]
  - Ear pain [None]
  - Lymphadenopathy [None]

NARRATIVE: CASE EVENT DATE: 20141127
